FAERS Safety Report 6524162-5 (Version None)
Quarter: 2009Q4

REPORT INFORMATION
  Report Type: 
  Country: None (occurrence: None)
  Receive Date: 20091231
  Receipt Date: 20091221
  Transmission Date: 20100525
  Serious: Yes (Congenital Anomaly)
  Sender: FDA-Public Use
  Company Number: GB-WATSON-2009-10972

PATIENT
  Age: 20 Week

DRUGS (1)
  1. LAMOTRIGINE (WATSON LABORATORIES) [Suspect]
     Indication: DRUG EXPOSURE DURING PREGNANCY
     Dosage: 100 MG, UNK
     Route: 064
     Dates: start: 20040101, end: 20070301

REACTIONS (4)
  - ANENCEPHALY [None]
  - CONGENITAL ECTOPIC BLADDER [None]
  - EXOMPHALOS [None]
  - LIMB MALFORMATION [None]
